FAERS Safety Report 14817098 (Version 3)
Quarter: 2019Q1

REPORT INFORMATION
  Report Type: Spontaneous
  Country: JP (occurrence: JP)
  Receive Date: 20180426
  Receipt Date: 20190125
  Transmission Date: 20190417
  Serious: No
  Sender: FDA-Public Use
  Company Number: PHJP2018JP008886

PATIENT
  Age: 79 Year

DRUGS (1)
  1. ZOMETA [Suspect]
     Active Substance: ZOLEDRONIC ACID
     Indication: PLASMA CELL MYELOMA
     Dosage: UNK
     Route: 041

REACTIONS (1)
  - Chondropathy [Unknown]
